FAERS Safety Report 7133371-6 (Version None)
Quarter: 2010Q4

REPORT INFORMATION
  Report Type: 
  Country: None (occurrence: None)
  Receive Date: 20101202
  Receipt Date: 20101126
  Transmission Date: 20110411
  Serious: Yes (Hospitalization)
  Sender: FDA-Public Use
  Company Number: CN-B.I. PHARMACEUTICALS,INC./RIDGEFIELD-2010-CS-01010CS

PATIENT
  Age: 72 Year
  Sex: Male

DRUGS (3)
  1. MICARDIS [Suspect]
     Indication: HYPERTENSION
     Route: 048
     Dates: start: 20101120, end: 20101126
  2. NIFEDIPINE [Concomitant]
     Indication: HYPERTENSION
     Dates: start: 20101120, end: 20101126
  3. ASPIRIN [Concomitant]
     Indication: ANTICOAGULATION DRUG LEVEL

REACTIONS (1)
  - HAEMATURIA [None]
